FAERS Safety Report 10504714 (Version 2)
Quarter: 2014Q4

REPORT INFORMATION
  Report Type: Spontaneous
  Country: SE (occurrence: SE)
  Receive Date: 20141008
  Receipt Date: 20141008
  Transmission Date: 20150528
  Serious: Yes (Other)
  Sender: FDA-Public Use
  Company Number: SE-JNJFOC-20140901363

PATIENT
  Age: 46 Year
  Sex: Female

DRUGS (4)
  1. RISPERDAL CONSTA [Suspect]
     Active Substance: RISPERIDONE
     Indication: SCHIZOPHRENIA
     Route: 030
     Dates: start: 2013
  2. RISPERDAL CONSTA [Suspect]
     Active Substance: RISPERIDONE
     Indication: BIPOLAR I DISORDER
     Route: 030
     Dates: start: 2013
  3. LITHIUM [Suspect]
     Active Substance: LITHIUM CARBONATE
     Indication: BIPOLAR I DISORDER
     Route: 065
  4. LITHIUM [Suspect]
     Active Substance: LITHIUM CARBONATE
     Indication: SCHIZOPHRENIA
     Route: 065

REACTIONS (17)
  - Dry eye [Unknown]
  - Anaemia [Unknown]
  - Sensation of foreign body [Unknown]
  - Dry mouth [Unknown]
  - Blood urine present [Unknown]
  - Gout [Unknown]
  - Diabetes mellitus [Unknown]
  - Chronic gastritis [Unknown]
  - Nasal dryness [Unknown]
  - Abdominal pain upper [Recovered/Resolved]
  - Thyroid disorder [Unknown]
  - Oesophagitis [Unknown]
  - Tinnitus [Unknown]
  - Dyspnoea [Unknown]
  - Neoplasm malignant [Unknown]
  - Insomnia [Unknown]
  - Product use issue [Unknown]
